FAERS Safety Report 7752462-X (Version None)
Quarter: 2011Q3

REPORT INFORMATION
  Report Type: 
  Country: None (occurrence: None)
  Receive Date: 20110913
  Receipt Date: 20110906
  Transmission Date: 20111222
  Serious: Yes (Hospitalization)
  Sender: FDA-Public Use
  Company Number: WAES 1108USA03610

PATIENT
  Age: 57 Year
  Sex: Male
  Weight: 102.0593 kg

DRUGS (7)
  1. ALBUTEROL [Concomitant]
  2. SITAGLIPTIN PHOSPHATE [Suspect]
     Indication: TYPE 2 DIABETES MELLITUS
     Dosage: 2 TAB/DAILY/PO, 1 TAB/DAILY/PO
     Route: 048
     Dates: start: 20110615, end: 20110712
  3. SITAGLIPTIN PHOSPHATE [Suspect]
     Indication: TYPE 2 DIABETES MELLITUS
     Dosage: 2 TAB/DAILY/PO, 1 TAB/DAILY/PO
     Route: 048
     Dates: start: 20110324, end: 20110324
  4. ZOCOR [Concomitant]
  5. THYROXIN [Concomitant]
  6. LISINOPRIL [Concomitant]
  7. METFORMIN HCL [Concomitant]

REACTIONS (9)
  - DYSPNOEA [None]
  - DYSLIPIDAEMIA [None]
  - LEUKOCYTOSIS [None]
  - WHEEZING [None]
  - SLEEP APNOEA SYNDROME [None]
  - CHRONIC OBSTRUCTIVE PULMONARY DISEASE [None]
  - COUGH [None]
  - HYPOTHYROIDISM [None]
  - CONDITION AGGRAVATED [None]
